FAERS Safety Report 11640764 (Version 6)
Quarter: 2016Q1

REPORT INFORMATION
  Report Type: Spontaneous
  Country: US (occurrence: US)
  Receive Date: 20151019
  Receipt Date: 20160216
  Transmission Date: 20160525
  Serious: Yes (Hospitalization, Other)
  Sender: FDA-Public Use
  Company Number: US-CELGENE-USA-2015095823

PATIENT
  Age: 84 Year
  Sex: Male
  Weight: 98.06 kg

DRUGS (24)
  1. FINASTERIDE. [Concomitant]
     Active Substance: FINASTERIDE
     Indication: PRODUCT USED FOR UNKNOWN INDICATION
     Route: 048
  2. ACYCLOVIR. [Concomitant]
     Active Substance: ACYCLOVIR
     Indication: PRODUCT USED FOR UNKNOWN INDICATION
     Route: 048
  3. LOVASTATIN. [Concomitant]
     Active Substance: LOVASTATIN
     Indication: PRODUCT USED FOR UNKNOWN INDICATION
     Dosage: 200 MILLIGRAM
     Route: 048
  4. ZOSYN [Concomitant]
     Active Substance: PIPERACILLIN SODIUM\TAZOBACTAM SODIUM
     Indication: INFECTION PROPHYLAXIS
     Route: 041
     Dates: start: 20150920, end: 20150920
  5. METOPROLOL SUCCINATE. [Concomitant]
     Active Substance: METOPROLOL SUCCINATE
     Indication: PRODUCT USED FOR UNKNOWN INDICATION
     Route: 048
  6. LEVEMIR [Concomitant]
     Active Substance: INSULIN DETEMIR
     Indication: PRODUCT USED FOR UNKNOWN INDICATION
     Dosage: 40 UNITS WITH STEROID
     Route: 065
  7. REVLIMID [Suspect]
     Active Substance: LENALIDOMIDE
     Indication: PLASMA CELL MYELOMA
     Dosage: CYCLE 1
     Route: 048
     Dates: start: 20131101, end: 20150919
  8. DEXAMETHASONE. [Suspect]
     Active Substance: DEXAMETHASONE
     Indication: PLASMA CELL MYELOMA
     Dosage: CYCLE 1 ON DAYS 1, 8, 15 AND 22
     Route: 048
     Dates: start: 20131101, end: 20150919
  9. TYLENOL [Concomitant]
     Active Substance: ACETAMINOPHEN
     Indication: CYSTOSCOPY
     Route: 048
     Dates: start: 20150920
  10. XARELTO [Suspect]
     Active Substance: RIVAROXABAN
     Indication: DEEP VEIN THROMBOSIS
     Route: 048
  11. ASA [Suspect]
     Active Substance: ASPIRIN
     Indication: PRODUCT USED FOR UNKNOWN INDICATION
     Route: 065
  12. AMIODARONE [Concomitant]
     Active Substance: AMIODARONE
     Indication: PRODUCT USED FOR UNKNOWN INDICATION
     Route: 048
  13. PANTOPRAZOLE [Concomitant]
     Active Substance: PANTOPRAZOLE SODIUM
     Indication: PRODUCT USED FOR UNKNOWN INDICATION
     Route: 048
  14. TAMSULOSIN [Concomitant]
     Active Substance: TAMSULOSIN
     Indication: PROSTATOMEGALY
     Route: 048
  15. OXYCODONE [Concomitant]
     Active Substance: OXYCODONE
     Indication: PAIN
     Dosage: 1-2 TABLETS
     Route: 048
  16. DULERA [Concomitant]
     Active Substance: FORMOTEROL FUMARATE DIHYDRATE\MOMETASONE FUROATE
     Indication: PRODUCT USED FOR UNKNOWN INDICATION
     Dosage: 200-5MCG/ACT
     Route: 055
  17. NORMAL SALINE [Concomitant]
     Active Substance: SODIUM CHLORIDE
     Indication: CYSTOSCOPY
     Dosage: 50 ML/HR
     Route: 041
     Dates: start: 20150923, end: 20150923
  18. DEXAMETHASONE. [Suspect]
     Active Substance: DEXAMETHASONE
     Dosage: CYCLE 24 ON DAYS 1, 8, 15 AND 22
     Route: 048
     Dates: start: 20150919, end: 20150923
  19. SOLU-MEDROL [Concomitant]
     Active Substance: METHYLPREDNISOLONE SODIUM SUCCINATE
     Indication: CHRONIC OBSTRUCTIVE PULMONARY DISEASE
     Dosage: 400 MILLIGRAM
     Route: 041
     Dates: start: 20150920, end: 20150920
  20. ATROVENT [Concomitant]
     Active Substance: IPRATROPIUM BROMIDE
     Indication: CHRONIC OBSTRUCTIVE PULMONARY DISEASE
     Dosage: 0.02% 0.05MG
     Route: 065
     Dates: start: 20150920
  21. REVLIMID [Suspect]
     Active Substance: LENALIDOMIDE
     Dosage: CYCLE 24
     Route: 048
     Dates: start: 20150919, end: 20150923
  22. CIPROFLOXACIN. [Concomitant]
     Active Substance: CIPROFLOXACIN
     Indication: CYSTOSCOPY
     Route: 041
     Dates: start: 20150923, end: 20150924
  23. HUMALOG [Concomitant]
     Active Substance: INSULIN LISPRO
     Indication: PRODUCT USED FOR UNKNOWN INDICATION
     Dosage: 100 UNIT/ML
     Route: 065
  24. NORMOSOL-R [Concomitant]
     Active Substance: MAGNESIUM CHLORIDE\POTASSIUM CHLORIDE\SODIUM ACETATE ANHYDROUS\SODIUM CHLORIDE\SODIUM GLUCONATE
     Indication: CYSTOSCOPY
     Dosage: 100ML/HR
     Route: 041
     Dates: start: 20150923

REACTIONS (1)
  - Bladder transitional cell carcinoma [Not Recovered/Not Resolved]

NARRATIVE: CASE EVENT DATE: 20150923
